FAERS Safety Report 6848695-7 (Version None)
Quarter: 2010Q3

REPORT INFORMATION
  Report Type: 
  Country: None (occurrence: None)
  Receive Date: 20100716
  Receipt Date: 20070906
  Transmission Date: 20110219
  Serious: No
  Sender: FDA-Public Use
  Company Number: US-PFIZER INC-2007075638

PATIENT
  Sex: Female
  Weight: 61.2 kg

DRUGS (5)
  1. CHANTIX [Suspect]
     Indication: SMOKING CESSATION THERAPY
     Dates: start: 20070902
  2. METHADONE HCL [Interacting]
  3. PROZAC [Interacting]
  4. PREVACID [Interacting]
     Indication: ULCER
  5. SEROQUEL [Interacting]

REACTIONS (3)
  - DRUG INTERACTION [None]
  - NAUSEA [None]
  - TOBACCO WITHDRAWAL SYMPTOMS [None]
